FAERS Safety Report 14841024 (Version 1)
Quarter: 2018Q2

REPORT INFORMATION
  Report Type: Spontaneous
  Country: US (occurrence: US)
  Receive Date: 20180418
  Receipt Date: 20180418
  Transmission Date: 20180711
  Serious: No
  Sender: FDA-Public Use
  Company Number: None

PATIENT
  Age: 40 Year
  Sex: Female
  Weight: 81 kg

DRUGS (1)
  1. CREST PRO-HEALTH RINSE [Suspect]
     Active Substance: CETYLPYRIDINIUM CHLORIDE
     Indication: PERIODONTAL DISEASE
     Dosage: ?          QUANTITY:4 TEASPOON(S);OTHER ROUTE:MOUTHWASH?
     Dates: start: 20180417, end: 20180417

REACTIONS (1)
  - Ageusia [None]

NARRATIVE: CASE EVENT DATE: 20180418
